FAERS Safety Report 14384427 (Version 1)
Quarter: 2018Q1

REPORT INFORMATION
  Report Type: Spontaneous
  Country: US (occurrence: US)
  Receive Date: 20180115
  Receipt Date: 20180115
  Transmission Date: 20180509
  Serious: Yes (Other)
  Sender: FDA-Public Use
  Company Number: US-SUN PHARMACEUTICAL INDUSTRIES LTD-2017US-154338

PATIENT
  Age: 81 Year
  Sex: Male

DRUGS (7)
  1. RITUXIMAB. [Suspect]
     Active Substance: RITUXIMAB
     Indication: AUTOIMMUNE HAEMOLYTIC ANAEMIA
     Dosage: UNK UNK, 1/WEEK
     Route: 065
     Dates: start: 2015
  2. DOXYCYCLINE. [Concomitant]
     Active Substance: DOXYCYCLINE
     Indication: BABESIOSIS
     Dosage: 100 MG, BID
     Route: 065
     Dates: start: 2015, end: 2015
  3. AZITHROMYCIN ANHYDROUS. [Suspect]
     Active Substance: AZITHROMYCIN ANHYDROUS
     Indication: BABESIOSIS
     Dosage: 500 MG, DAILY
     Route: 065
     Dates: start: 2015
  4. ATOVAQUONE. [Suspect]
     Active Substance: ATOVAQUONE
     Indication: BABESIOSIS
     Dosage: 750 MG, BID
     Route: 065
     Dates: start: 2015
  5. AZITHROMYCIN ANHYDROUS. [Suspect]
     Active Substance: AZITHROMYCIN ANHYDROUS
     Dosage: 1000 MG, DAILY
     Route: 065
     Dates: start: 2015
  6. PROGUANIL [Concomitant]
     Active Substance: PROGUANIL
     Indication: BABESIOSIS
     Dosage: 400 MG, DAILY
     Route: 065
     Dates: start: 2015
  7. ATOVAQUONE. [Suspect]
     Active Substance: ATOVAQUONE
     Dosage: 1750 MG, DAILY
     Route: 065
     Dates: start: 2015

REACTIONS (4)
  - Treatment failure [Unknown]
  - Drug resistance [Unknown]
  - Gene mutation [Unknown]
  - Babesiosis [Recovered/Resolved]

NARRATIVE: CASE EVENT DATE: 2015
